FAERS Safety Report 11714045 (Version 1)
Quarter: 2015Q4

REPORT INFORMATION
  Report Type: Spontaneous
  Country: US (occurrence: None)
  Receive Date: 20151106
  Receipt Date: 20151106
  Transmission Date: 20160304
  Serious: Yes (Other)
  Sender: FDA-Public Use
  Company Number: None

PATIENT
  Age: 49 Year
  Sex: Female

DRUGS (8)
  1. RELAFEN [Concomitant]
     Active Substance: NABUMETONE
  2. EXCEDRIN [Concomitant]
     Active Substance: ACETAMINOPHEN\ASPIRIN\CAFFEINE
  3. TRAMADOL. [Concomitant]
     Active Substance: TRAMADOL
  4. DEPLIN [Suspect]
     Active Substance: LEVOMEFOLATE CALCIUM
     Indication: PRODUCT USED FOR UNKNOWN INDICATION
     Dosage: 1/D PO
     Route: 048
     Dates: start: 20151015, end: 20151025
  5. TRAZODONE [Concomitant]
     Active Substance: TRAZODONE HYDROCHLORIDE
  6. LAMICTAL [Concomitant]
     Active Substance: LAMOTRIGINE
  7. KLONOPIN [Concomitant]
     Active Substance: CLONAZEPAM
  8. SPIRONOLACTONE. [Concomitant]
     Active Substance: SPIRONOLACTONE

REACTIONS (4)
  - Nightmare [None]
  - Stomatitis [None]
  - Headache [None]
  - Abnormal dreams [None]

NARRATIVE: CASE EVENT DATE: 201510
